FAERS Safety Report 5913088-3 (Version None)
Quarter: 2008Q4

REPORT INFORMATION
  Report Type: 
  Country: None (occurrence: None)
  Receive Date: 20081008
  Receipt Date: 20081008
  Transmission Date: 20090506
  Serious: Yes (Life-Threatening, Hospitalization)
  Sender: FDA-Public Use
  Company Number: None

PATIENT
  Age: 50 Year
  Sex: Female
  Weight: 90 kg

DRUGS (1)
  1. CEFUROXIME AXETIL [Suspect]
     Indication: RESPIRATORY TRACT INFECTION
     Dosage: 1-2 X DAILY AS NEEDED
     Dates: start: 20080819, end: 20080913

REACTIONS (6)
  - ANAPHYLACTIC REACTION [None]
  - DRUG HYPERSENSITIVITY [None]
  - FOAMING AT MOUTH [None]
  - NO REACTION ON PREVIOUS EXPOSURE TO DRUG [None]
  - PRODUCT QUALITY ISSUE [None]
  - RESPIRATORY ARREST [None]
